FAERS Safety Report 16678869 (Version 2)
Quarter: 2019Q3

REPORT INFORMATION
  Report Type: Spontaneous
  Country: CN (occurrence: CN)
  Receive Date: 20190807
  Receipt Date: 20190910
  Transmission Date: 20191004
  Serious: Yes (Other)
  Sender: FDA-Public Use
  Company Number: CN-ASTRAZENECA-2019SF12346

PATIENT
  Sex: Female

DRUGS (1)
  1. IRESSA [Suspect]
     Active Substance: GEFITINIB
     Indication: NON-SMALL CELL LUNG CANCER
     Route: 048
     Dates: end: 2019

REACTIONS (7)
  - Abdominal discomfort [Unknown]
  - Rash [Recovered/Resolved]
  - Vomiting [Unknown]
  - Hypophagia [Unknown]
  - Diarrhoea [Recovered/Resolved]
  - Drug resistance [Unknown]
  - Malignant neoplasm progression [Unknown]
